FAERS Safety Report 23649084 (Version 1)
Quarter: 2024Q1

REPORT INFORMATION
  Report Type: Spontaneous
  Country: US (occurrence: US)
  Receive Date: 20240319
  Receipt Date: 20240319
  Transmission Date: 20240410
  Serious: No
  Sender: FDA-Public Use
  Company Number: US-BoehringerIngelheim-2024-BI-016118

PATIENT
  Sex: Male

DRUGS (1)
  1. JARDIANCE [Suspect]
     Active Substance: EMPAGLIFLOZIN
     Indication: Myocardial infarction
     Dates: start: 2024

REACTIONS (1)
  - Intentional product use issue [Unknown]

NARRATIVE: CASE EVENT DATE: 20240101
